FAERS Safety Report 4395280-5 (Version None)
Quarter: 2004Q3

REPORT INFORMATION
  Report Type: 
  Country: None (occurrence: None)
  Receive Date: 20040706
  Receipt Date: 20040624
  Transmission Date: 20050211
  Serious: Yes (Congenital Anomaly)
  Sender: FDA-Public Use
  Company Number: 04P-056-0264818-00

PATIENT
  Age: 0 Day
  Sex: Male

DRUGS (1)
  1. DEPAKENE [Suspect]
     Dosage: TRANSPLACENTAL
     Route: 064

REACTIONS (10)
  - CONGENITAL HAND MALFORMATION [None]
  - CUSHINGOID [None]
  - DRUG EXPOSURE DURING PREGNANCY [None]
  - FACIAL DYSMORPHISM [None]
  - HYPOTONIA [None]
  - MICROCEPHALY [None]
  - MICROTIA [None]
  - MYOPIA [None]
  - PSYCHOTIC DISORDER [None]
  - VISUAL DISTURBANCE [None]
